FAERS Safety Report 6820832-X (Version None)
Quarter: 2010Q3

REPORT INFORMATION
  Report Type: 
  Country: None (occurrence: None)
  Receive Date: 20100707
  Receipt Date: 20070613
  Transmission Date: 20110219
  Serious: No
  Sender: FDA-Public Use
  Company Number: US-PFIZER INC-2007048674

PATIENT
  Sex: Female
  Weight: 124.74 kg

DRUGS (3)
  1. ZOLOFT [Suspect]
     Indication: STRESS
     Route: 048
     Dates: start: 20070515, end: 20070611
  2. ZYRTEC [Concomitant]
  3. GLUCOVANCE [Concomitant]

REACTIONS (1)
  - MYDRIASIS [None]
